FAERS Safety Report 12068198 (Version 1)
Quarter: 2016Q1

REPORT INFORMATION
  Report Type: Spontaneous
  Country: US (occurrence: US)
  Receive Date: 20160211
  Receipt Date: 20160211
  Transmission Date: 20160526
  Serious: No
  Sender: FDA-Public Use
  Company Number: US-SMITH AND NEPHEW, INC-2015SMT00425

PATIENT
  Sex: Male
  Weight: 65.31 kg

DRUGS (2)
  1. REGRANEX [Suspect]
     Active Substance: BECAPLERMIN
     Indication: PYODERMA
     Dosage: UNK, 1X/DAY
     Route: 061
     Dates: start: 201509
  2. TRAMADOL. [Concomitant]
     Active Substance: TRAMADOL
     Indication: PAIN
     Dosage: UNK, AS NEEDED

REACTIONS (3)
  - Application site nodule [Unknown]
  - Off label use [Unknown]
  - Application site discharge [Unknown]

NARRATIVE: CASE EVENT DATE: 2015
